FAERS Safety Report 25550763 (Version 3)
Quarter: 2025Q3

REPORT INFORMATION
  Report Type: Spontaneous
  Country: US (occurrence: US)
  Receive Date: 20250714
  Receipt Date: 20250912
  Transmission Date: 20251020
  Serious: Yes (Other)
  Sender: IOVANCE BIOTHERAPEUTICS MANUFACTURING LLC
  Company Number: US-IOVANCE BIOTHERAPEUTICS INC.-IOV2025000056

PATIENT

DRUGS (9)
  1. ALDESLEUKIN [Suspect]
     Active Substance: ALDESLEUKIN
     Indication: Product used for unknown indication
     Route: 065
     Dates: start: 20250129
  2. ALDESLEUKIN [Suspect]
     Active Substance: ALDESLEUKIN
     Route: 065
     Dates: start: 20250130
  3. ALDESLEUKIN [Suspect]
     Active Substance: ALDESLEUKIN
     Route: 065
     Dates: start: 20250131
  4. AMTAGVI [Suspect]
     Active Substance: LIFILEUCEL
     Indication: Product used for unknown indication
     Route: 065
     Dates: start: 20250128
  5. CYCLOPHOSPHAMIDE [Suspect]
     Active Substance: CYCLOPHOSPHAMIDE
     Indication: Product used for unknown indication
     Route: 065
     Dates: start: 20250120
  6. CYCLOPHOSPHAMIDE [Suspect]
     Active Substance: CYCLOPHOSPHAMIDE
     Route: 065
     Dates: start: 20250121
  7. FLUDARABINE [Suspect]
     Active Substance: FLUDARABINE PHOSPHATE
     Indication: Product used for unknown indication
     Route: 065
     Dates: start: 20250122
  8. FLUDARABINE [Suspect]
     Active Substance: FLUDARABINE PHOSPHATE
     Route: 065
     Dates: start: 20250126
  9. CARBOPLATIN;PACLITAXEL;PEMBROLIZUMAB [Concomitant]
     Indication: Product used for unknown indication
     Route: 065
     Dates: start: 20241228

REACTIONS (4)
  - Cytopenia [Not Recovered/Not Resolved]
  - Febrile neutropenia [Unknown]
  - Lymphopenia [Not Recovered/Not Resolved]
  - Bone marrow failure [Unknown]

NARRATIVE: CASE EVENT DATE: 20250131
